FAERS Safety Report 7089126-4 (Version None)
Quarter: 2010Q4

REPORT INFORMATION
  Report Type: 
  Country: None (occurrence: None)
  Receive Date: 20101108
  Receipt Date: 20101104
  Transmission Date: 20110411
  Serious: Yes (Hospitalization)
  Sender: FDA-Public Use
  Company Number: ZA-BRISTOL-MYERS SQUIBB COMPANY-15367469

PATIENT
  Age: 62 Year
  Sex: Male

DRUGS (5)
  1. CETUXIMAB [Suspect]
     Indication: NON-SMALL CELL LUNG CANCER
     Dosage: CETUXIMAB 5MG/ML.MOST RECENT INF 21JUL2009
     Route: 042
     Dates: start: 20090615, end: 20090721
  2. CARBOPLATIN [Suspect]
     Indication: NON-SMALL CELL LUNG CANCER
     Dosage: 1DF= AUC 5 ON DAY 1 OF 21 DAY CYCLE. MOST RECENT INF ON 7JUL2009.STOPPED
     Route: 042
     Dates: start: 20090615
  3. CISPLATIN [Suspect]
     Indication: NON-SMALL CELL LUNG CANCER
     Dates: start: 20090811, end: 20090811
  4. GEMCITABINE [Suspect]
     Indication: NON-SMALL CELL LUNG CANCER
     Dosage: ON DAY 1,8 OF 21 DAY CYCLE.STOPPED.MOST RECENT INF ON 14JUL2009
     Route: 042
     Dates: start: 20090615
  5. TAXOTERE [Suspect]
     Indication: NON-SMALL CELL LUNG CANCER
     Dosage: 120MG(11AUG09-01SEP09)21DAYS,50MG(22SEP09-08OCT09)16DAYS
     Dates: start: 20090811

REACTIONS (10)
  - ASTHENIA [None]
  - DYSPNOEA [None]
  - INTERNATIONAL NORMALISED RATIO INCREASED [None]
  - LYMPHANGITIS [None]
  - NAUSEA [None]
  - PLEURAL EFFUSION [None]
  - PROTHROMBIN TIME PROLONGED [None]
  - PULMONARY EMBOLISM [None]
  - THROMBOCYTOPENIA [None]
  - VOMITING [None]
